FAERS Safety Report 16844595 (Version 2)
Quarter: 2019Q4

REPORT INFORMATION
  Report Type: Report from Study
  Country: None (occurrence: US)
  Receive Date: 20190924
  Receipt Date: 20191106
  Transmission Date: 20200122
  Serious: Yes (Other)
  Sender: FDA-Public Use
  Company Number: US-ABBVIE-19K-163-2757152-00

PATIENT
  Age: 80 Year
  Sex: Female

DRUGS (1)
  1. HUMIRA [Suspect]
     Active Substance: ADALIMUMAB
     Indication: COLITIS ULCERATIVE
     Route: 058
     Dates: end: 20191002

REACTIONS (7)
  - Alveolar osteitis [Unknown]
  - Ulcer haemorrhage [Unknown]
  - Bronchitis [Recovered/Resolved]
  - Gingivitis [Unknown]
  - Nosocomial infection [Recovered/Resolved]
  - Tooth extraction [Unknown]
  - Procedural pain [Unknown]

NARRATIVE: CASE EVENT DATE: 20190411
